FAERS Safety Report 8430177-2 (Version None)
Quarter: 2012Q2

REPORT INFORMATION
  Report Type: 
  Country: None (occurrence: None)
  Receive Date: 20120612
  Receipt Date: 20120607
  Transmission Date: 20120825
  Serious: Yes (Hospitalization)
  Sender: FDA-Public Use
  Company Number: DE-ROCHE-1076942

PATIENT
  Sex: Male
  Weight: 70 kg

DRUGS (8)
  1. AVASTIN [Suspect]
     Route: 042
     Dates: start: 20100809
  2. AVASTIN [Suspect]
     Dosage: LAST DOSE 0N 04/FEB/2011
     Route: 042
     Dates: end: 20110204
  3. ROFERON-A [Suspect]
     Dosage: 3X6 MIO IE
     Route: 058
     Dates: start: 20100802
  4. ROFERON-A [Suspect]
     Dosage: 9 MIO/IE
     Route: 058
     Dates: start: 20100811
  5. ROFERON-A [Suspect]
     Indication: METASTATIC RENAL CELL CARCINOMA
     Dosage: MOST RECENT DOSE ON 28-JUL-2010, 3X9MIO IE
     Route: 058
     Dates: start: 20100623, end: 20100728
  6. AVASTIN [Suspect]
     Route: 042
     Dates: start: 20100802
  7. ROFERON-A [Suspect]
     Dosage: LAST DOSE ON 04/FEB/2011
     Route: 058
     Dates: end: 20110204
  8. AVASTIN [Suspect]
     Indication: METASTATIC RENAL CELL CARCINOMA
     Dosage: MOST RECENT DOSE ON 07/JUL/2010
     Route: 042
     Dates: start: 20100623, end: 20100726

REACTIONS (4)
  - DIARRHOEA [None]
  - DECREASED APPETITE [None]
  - GENERAL PHYSICAL HEALTH DETERIORATION [None]
  - NAUSEA [None]
